FAERS Safety Report 4339316-6 (Version None)
Quarter: 2004Q2

REPORT INFORMATION
  Report Type: 
  Country: None (occurrence: None)
  Receive Date: 20040412
  Receipt Date: 19991108
  Transmission Date: 20050107
  Serious: Yes (Death, Life-Threatening)
  Sender: FDA-Public Use
  Company Number: WAES 99120361

PATIENT
  Age: 1 Day
  Sex: Male

DRUGS (4)
  1. INDOCIN I.V. [Suspect]
     Indication: PATENT DUCTUS ARTERIOSUS
     Dosage: 1000 MICROGRAM/DAILY, IV
     Route: 042
     Dates: start: 19990603, end: 19990603
  2. CALCIUM GLUCONATE [Concomitant]
  3. GLUCOSE [Concomitant]
  4. SODIUM BICARBONATE [Concomitant]

REACTIONS (9)
  - BLOOD GLUCOSE INCREASED [None]
  - BLOOD SODIUM DECREASED [None]
  - HAEMORRHAGE INTRACRANIAL [None]
  - HYPERKALAEMIA [None]
  - HYPOPROTEINAEMIA [None]
  - MULTI-ORGAN FAILURE [None]
  - PLATELET COUNT DECREASED [None]
  - RENAL FAILURE [None]
  - WHITE BLOOD CELL COUNT INCREASED [None]
